FAERS Safety Report 5922351-1 (Version None)
Quarter: 2008Q4

REPORT INFORMATION
  Report Type: 
  Country: None (occurrence: None)
  Receive Date: 20081017
  Receipt Date: 20081015
  Transmission Date: 20090506
  Serious: Yes (Hospitalization)
  Sender: FDA-Public Use
  Company Number: US-BRISTOL-MYERS SQUIBB COMPANY-14337158

PATIENT
  Age: 59 Year
  Sex: Female
  Weight: 58 kg

DRUGS (3)
  1. CETUXIMAB [Suspect]
     Indication: SQUAMOUS CELL CARCINOMA OF THE CERVIX
     Dosage: INITIAL DOSE 25AUG08. CETUXIMAB 400 MG/M2 INITIAL LOADING DOSE WEEK 1, THEN 250 MG/M2 X 5 WEEKS.
     Dates: start: 20080908, end: 20080908
  2. CISPLATIN [Suspect]
     Indication: SQUAMOUS CELL CARCINOMA OF THE CERVIX
     Dosage: CISPLATIN 30 MG/M2/WEEK X 6 WEEKS.
     Dates: start: 20080908, end: 20080908
  3. RADIATION THERAPY [Suspect]
     Indication: SQUAMOUS CELL CARCINOMA OF THE CERVIX

REACTIONS (7)
  - ABDOMINAL PAIN [None]
  - ANOREXIA [None]
  - DIARRHOEA [None]
  - GRANULOCYTE COUNT DECREASED [None]
  - NAUSEA [None]
  - VOMITING [None]
  - WHITE BLOOD CELL COUNT DECREASED [None]
